FAERS Safety Report 4328442-3 (Version None)
Quarter: 2004Q1

REPORT INFORMATION
  Report Type: 
  Country: None (occurrence: None)
  Receive Date: 20040331
  Receipt Date: 20040129
  Transmission Date: 20041129
  Serious: Yes (Other)
  Sender: FDA-Public Use
  Company Number: PHEH2004US01378

PATIENT
  Age: 76 Year
  Sex: Female

DRUGS (5)
  1. ZOMETA [Suspect]
     Indication: MULTIPLE MYELOMA
     Dosage: 4 MG, QMO
     Route: 042
     Dates: start: 20020115, end: 20031017
  2. PREDNISONE [Concomitant]
     Dosage: 25 UNK, QOD
     Dates: end: 20030101
  3. ELAVIL [Concomitant]
  4. VICODIN [Concomitant]
  5. ZOLOFT [Concomitant]

REACTIONS (3)
  - JAW OPERATION [None]
  - OSTEOMYELITIS [None]
  - TOOTH EXTRACTION [None]
